FAERS Safety Report 7299192-9 (Version None)
Quarter: 2011Q1

REPORT INFORMATION
  Report Type: 
  Country: None (occurrence: None)
  Receive Date: 20110217
  Receipt Date: 20110209
  Transmission Date: 20110831
  Serious: Yes (Other)
  Sender: FDA-Public Use
  Company Number: US-PFIZER INC-2010050391

PATIENT
  Sex: Female
  Weight: 83.9 kg

DRUGS (6)
  1. ZOLOFT [Suspect]
     Indication: DEPRESSION
     Dosage: 50 MG, DAILY
     Dates: start: 19980101
  2. AMBIEN [Concomitant]
     Indication: INSOMNIA
     Dosage: UNK
  3. XANAX [Concomitant]
     Dosage: UNK
  4. SOMA [Concomitant]
     Dosage: UNK
  5. CODEINE [Concomitant]
  6. PRISTIQ [Suspect]
     Indication: DEPRESSION
     Dosage: 50 MG, 1X/DAY
     Dates: start: 20100414

REACTIONS (9)
  - DYSMENORRHOEA [None]
  - HEADACHE [None]
  - DRY MOUTH [None]
  - CONSTIPATION [None]
  - OROPHARYNGEAL BLISTERING [None]
  - GALLBLADDER DISORDER [None]
  - ABDOMINAL PAIN UPPER [None]
  - ABDOMINAL PAIN [None]
  - WEIGHT INCREASED [None]
